FAERS Safety Report 5704159-5 (Version None)
Quarter: 2008Q2

REPORT INFORMATION
  Report Type: 
  Country: None (occurrence: None)
  Receive Date: 20080414
  Receipt Date: 20080414
  Transmission Date: 20081010
  Serious: Yes (Hospitalization)
  Sender: FDA-Public Use
  Company Number: None

PATIENT
  Age: 64 Year
  Sex: Male
  Weight: 230 kg

DRUGS (21)
  1. HEPARIN [Suspect]
     Indication: THROMBOSIS PROPHYLAXIS
     Dosage: 5,000 UNITS EVERY 8 HOURS SC
     Route: 058
     Dates: start: 20080217, end: 20080228
  2. ACYCLOVIR [Concomitant]
  3. CEFTRIAXONE [Concomitant]
  4. CHLORASCEPTIC SPRAY [Concomitant]
  5. DEXAMETHASONE [Concomitant]
  6. FENTANYL [Concomitant]
  7. GENTAMICIN [Concomitant]
  8. HALOPERIDOL [Concomitant]
  9. LORAZEPAM [Concomitant]
  10. PANTOPRAZOLE SODIUM [Concomitant]
  11. PROPOFOL INFUSION [Concomitant]
  12. SALINE NASAL SPRAY [Concomitant]
  13. SALINE FLUSH [Concomitant]
  14. VANCOMYCIN [Concomitant]
  15. ZOSYN [Concomitant]
  16. FOLIC ACID/MULTI VITAMIN/THIAMINE [Concomitant]
  17. HEPARIN [Suspect]
  18. HEPARIN [Suspect]
  19. HEPARIN [Suspect]
  20. HEPARIN [Suspect]
  21. HEPARIN [Suspect]

REACTIONS (2)
  - ANTI-PLATELET ANTIBODY POSITIVE [None]
  - HEPARIN-INDUCED THROMBOCYTOPENIA [None]
